FAERS Safety Report 18716940 (Version 1)
Quarter: 2021Q1

REPORT INFORMATION
  Report Type: Spontaneous
  Country: US (occurrence: US)
  Receive Date: 20210108
  Receipt Date: 20210108
  Transmission Date: 20210419
  Serious: Yes (Other)
  Sender: FDA-Public Use
  Company Number: US-MYLANLABS-2021M1000625

PATIENT
  Age: 41 Year
  Sex: Female

DRUGS (2)
  1. LEVOTHYROXINE. [Suspect]
     Active Substance: LEVOTHYROXINE
     Indication: HYPOTHYROIDISM
     Dosage: UNK
     Route: 065
  2. LITHIUM. [Suspect]
     Active Substance: LITHIUM
     Indication: MANIA
     Route: 065

REACTIONS (4)
  - Hypothyroidism [Not Recovered/Not Resolved]
  - Thyroiditis [Recovered/Resolved]
  - Goitre [Recovered/Resolved]
  - Hyperthyroidism [Recovered/Resolved]
